FAERS Safety Report 8966279 (Version 2)
Quarter: 2012Q4

REPORT INFORMATION
  Report Type: 
  Country: KR (occurrence: KR)
  Receive Date: 20121217
  Receipt Date: 20121220
  Transmission Date: 20130627
  Serious: Yes (Other)
  Sender: FDA-Public Use
  Company Number: KR-SANOFI-AVENTIS-2012SA090539

PATIENT
  Age: 60 Year
  Sex: Male

DRUGS (2)
  1. FINASTERIDE [Suspect]
     Indication: BENIGN PROSTATIC HYPERPLASIA
     Route: 065
     Dates: start: 201006
  2. ALFUZOSIN HYDROCHLORIDE [Suspect]
     Indication: BENIGN PROSTATIC HYPERPLASIA
     Route: 065
     Dates: start: 201006

REACTIONS (8)
  - Hypotension [Recovering/Resolving]
  - Dizziness [Recovering/Resolving]
  - Optic ischaemic neuropathy [Recovered/Resolved]
  - Visual acuity reduced [Recovered/Resolved]
  - Colour blindness acquired [Recovered/Resolved]
  - Pupillary reflex impaired [Recovered/Resolved]
  - Vision blurred [Recovered/Resolved]
  - Blindness transient [Recovered/Resolved]
